FAERS Safety Report 7289102-2 (Version None)
Quarter: 2011Q1

REPORT INFORMATION
  Report Type: 
  Country: None (occurrence: None)
  Receive Date: 20110201
  Receipt Date: 20110124
  Transmission Date: 20110831
  Serious: Yes (Hospitalization, Other)
  Sender: FDA-Public Use
  Company Number: 2010SP025234

PATIENT
  Age: 27 Year
  Sex: Female
  Weight: 81.6475 kg

DRUGS (2)
  1. PENICILLIN [Suspect]
     Indication: PHARYNGITIS STREPTOCOCCAL
  2. NUVARING [Suspect]
     Indication: CONTRACEPTION
     Dosage: 1 DF, QM, VAG
     Route: 067
     Dates: start: 20081001, end: 20090515

REACTIONS (17)
  - DEPRESSION [None]
  - IRON DEFICIENCY [None]
  - PELVIC PAIN [None]
  - URINARY TRACT INFECTION [None]
  - ARTHRALGIA [None]
  - INTERNATIONAL NORMALISED RATIO DECREASED [None]
  - DYSPNOEA [None]
  - DEEP VEIN THROMBOSIS [None]
  - ESCHERICHIA TEST POSITIVE [None]
  - THROMBOPHLEBITIS [None]
  - POST THROMBOTIC SYNDROME [None]
  - WHEEZING [None]
  - DRUG HYPERSENSITIVITY [None]
  - WEIGHT DECREASED [None]
  - PHARYNGITIS STREPTOCOCCAL [None]
  - BACTERIAL TEST POSITIVE [None]
  - LEUKOCYTOSIS [None]
